FAERS Safety Report 20363253 (Version 3)
Quarter: 2022Q4

REPORT INFORMATION
  Report Type: Report from Study
  Country: US (occurrence: US)
  Receive Date: 20220121
  Receipt Date: 20221028
  Transmission Date: 20230113
  Serious: Yes (Other)
  Sender: FDA-Public Use
  Company Number: US-BIOVITRUM-2022US00734

PATIENT
  Sex: Female

DRUGS (2)
  1. KINERET [Suspect]
     Active Substance: ANAKINRA
     Indication: Rheumatoid arthritis
     Dates: start: 20190522
  2. KINERET [Suspect]
     Active Substance: ANAKINRA
     Dates: start: 201905

REACTIONS (11)
  - Syncope [Unknown]
  - Loss of consciousness [Unknown]
  - COVID-19 [Unknown]
  - Back injury [Unknown]
  - Dehydration [Unknown]
  - Fall [Unknown]
  - Head injury [Unknown]
  - Fatigue [Unknown]
  - Decreased appetite [Recovering/Resolving]
  - Somnolence [Recovering/Resolving]
  - Product dose omission issue [Unknown]
